FAERS Safety Report 8938221 (Version 2)
Quarter: 2013Q2

REPORT INFORMATION
  Report Type: Report from Study
  Country: GB (occurrence: GB)
  Receive Date: 20121130
  Receipt Date: 20130530
  Transmission Date: 20140414
  Serious: Yes (Hospitalization)
  Sender: FDA-Public Use
  Company Number: GB-JNJFOC-20121114040

PATIENT
  Age: 60 Year
  Sex: Male

DRUGS (3)
  1. GOLIMUMAB [Suspect]
     Indication: PRODUCT USED FOR UNKNOWN INDICATION
     Route: 058
  2. GOLIMUMAB [Suspect]
     Indication: PRODUCT USED FOR UNKNOWN INDICATION
     Route: 058
     Dates: start: 20121120
  3. TRAMADOL [Concomitant]

REACTIONS (2)
  - VIIth nerve paralysis [Recovered/Resolved]
  - Transient ischaemic attack [Recovered/Resolved]
